FAERS Safety Report 17823078 (Version 1)
Quarter: 2020Q2

REPORT INFORMATION
  Report Type: Spontaneous
  Country: US (occurrence: US)
  Receive Date: 20200524
  Receipt Date: 20200524
  Transmission Date: 20200714
  Serious: Yes (Death)
  Sender: FDA-Public Use
  Company Number: None

PATIENT
  Age: 68 Year
  Sex: Male
  Weight: 99.5 kg

DRUGS (17)
  1. INSULIN REGULAR [Concomitant]
     Active Substance: INSULIN NOS
     Dates: start: 20200510, end: 20200522
  2. VANCOMYCIN [Concomitant]
     Active Substance: VANCOMYCIN
     Dates: start: 20200510, end: 20200512
  3. DUONEB [Concomitant]
     Active Substance: ALBUTEROL SULFATE\IPRATROPIUM BROMIDE
     Dates: start: 20200507, end: 20200518
  4. ATORVASTATIN [Concomitant]
     Active Substance: ATORVASTATIN
     Dates: start: 20200506, end: 20200521
  5. CISATRACURIUM. [Concomitant]
     Active Substance: CISATRACURIUM
     Dates: start: 20200512, end: 20200517
  6. FENTANYL. [Concomitant]
     Active Substance: FENTANYL
     Dates: start: 20200510, end: 20200519
  7. DEXMEDETOMIDINE. [Concomitant]
     Active Substance: DEXMEDETOMIDINE
     Dates: start: 20200508, end: 20200512
  8. LORAZEPAM. [Concomitant]
     Active Substance: LORAZEPAM
     Dates: start: 20200510, end: 20200510
  9. METHYLPREDNISOLONE. [Concomitant]
     Active Substance: METHYLPREDNISOLONE
     Dates: start: 20200510, end: 20200511
  10. INSULIN GLARGINE [Concomitant]
     Active Substance: INSULIN GLARGINE
     Dates: start: 20200510, end: 20200522
  11. REMDESIVIR. [Suspect]
     Active Substance: REMDESIVIR
     Indication: COVID-19
     Route: 042
     Dates: start: 20200510, end: 20200513
  12. INSULIN LISPRO [Concomitant]
     Active Substance: INSULIN LISPRO
     Dates: start: 20200510, end: 20200522
  13. DAPTOMYCIN. [Concomitant]
     Active Substance: DAPTOMYCIN
     Dates: start: 20200513, end: 20200518
  14. LABETALOL [Concomitant]
     Active Substance: LABETALOL\LABETALOL HYDROCHLORIDE
     Dates: start: 20200513, end: 20200513
  15. BUPROPION. [Concomitant]
     Active Substance: BUPROPION
     Dates: start: 20200506, end: 20200522
  16. CEFEPIME [Concomitant]
     Active Substance: CEFEPIME HYDROCHLORIDE
     Dates: start: 20200511, end: 20200516
  17. ENOXAPARIN [Concomitant]
     Active Substance: ENOXAPARIN
     Dates: start: 20200506, end: 20200514

REACTIONS (2)
  - Haemodialysis [None]
  - Acute kidney injury [None]

NARRATIVE: CASE EVENT DATE: 20200522
